FAERS Safety Report 8140331-5 (Version None)
Quarter: 2012Q1

REPORT INFORMATION
  Report Type: 
  Country: None (occurrence: None)
  Receive Date: 20120216
  Receipt Date: 20120213
  Transmission Date: 20120608
  Serious: No
  Sender: FDA-Public Use
  Company Number: US-PFIZER INC-2012038739

PATIENT
  Sex: Female
  Weight: 70.7 kg

DRUGS (1)
  1. PREMARIN [Suspect]
     Indication: ATROPHIC VULVOVAGINITIS
     Dosage: UNK, 3X/WEEK
     Route: 067
     Dates: start: 20101101, end: 20111101

REACTIONS (4)
  - ANXIETY [None]
  - VULVOVAGINAL PAIN [None]
  - DYSPAREUNIA [None]
  - DEPRESSION [None]
